FAERS Safety Report 15541445 (Version 4)
Quarter: 2018Q4

REPORT INFORMATION
  Report Type: Spontaneous
  Country: PT (occurrence: PT)
  Receive Date: 20181023
  Receipt Date: 20181221
  Transmission Date: 20190205
  Serious: Yes (Other)
  Sender: FDA-Public Use
  Company Number: PT-PFIZER INC-2018425508

PATIENT
  Age: 27 Year
  Sex: Male

DRUGS (9)
  1. LEVOMEPROMAZINE [Interacting]
     Active Substance: LEVOMEPROMAZINE
     Dosage: 300 MG, DAILY
     Route: 048
  2. DIAZEPAM. [Interacting]
     Active Substance: DIAZEPAM
     Dosage: 10 MG, UNK
     Route: 030
  3. LEVOMEPROMAZINE [Interacting]
     Active Substance: LEVOMEPROMAZINE
     Dosage: 25 MG, 3X/DAY
     Route: 048
  4. BIPERIDEN [Interacting]
     Active Substance: BIPERIDEN
     Dosage: 4 MG, DAILY
     Route: 048
  5. RISPERIDONE. [Interacting]
     Active Substance: RISPERIDONE
     Dosage: 4 MG, DAILY
     Route: 048
  6. CHLORPROMAZINE. [Interacting]
     Active Substance: CHLORPROMAZINE
     Dosage: 50 MG, UNK
     Route: 030
  7. LORAZEPAM. [Suspect]
     Active Substance: LORAZEPAM
     Dosage: 10 MG, DAILY
     Route: 048
  8. LEVOMEPROMAZINE [Interacting]
     Active Substance: LEVOMEPROMAZINE
     Dosage: 75 MG, DAILY
     Route: 048
  9. HALOPERIDOL. [Interacting]
     Active Substance: HALOPERIDOL
     Dosage: 10 MG, UNK
     Route: 030

REACTIONS (2)
  - Drug interaction [Recovered/Resolved]
  - Drug screen false positive [Recovered/Resolved]
